FAERS Safety Report 15621741 (Version 1)
Quarter: 2018Q4

REPORT INFORMATION
  Report Type: Spontaneous
  Country: IT (occurrence: IT)
  Receive Date: 20181115
  Receipt Date: 20181115
  Transmission Date: 20190205
  Serious: Yes (Other)
  Sender: FDA-Public Use
  Company Number: IT-PFIZER INC-2018468754

PATIENT
  Age: 85 Year

DRUGS (10)
  1. PORTOLAC [Concomitant]
     Active Substance: LACTITOL
  2. IBRANCE [Suspect]
     Active Substance: PALBOCICLIB
     Indication: BREAST CANCER
     Dosage: 100 MG, 1X/DAY
     Route: 048
     Dates: start: 20180509, end: 20180802
  3. FASLODEX [Concomitant]
     Active Substance: FULVESTRANT
     Dates: start: 20180214, end: 20180705
  4. ZOLEDRONIC ACID MYLAN [Concomitant]
     Active Substance: ZOLEDRONIC ACID
     Dates: start: 20170524
  5. CYMBALTA [Concomitant]
     Active Substance: DULOXETINE HYDROCHLORIDE
     Dosage: UNK
  6. VASORETIC [Concomitant]
     Active Substance: ENALAPRIL MALEATE\HYDROCHLOROTHIAZIDE
     Dosage: UNK
  7. TARGIN [Concomitant]
     Active Substance: NALOXONE HYDROCHLORIDE\OXYCODONE HYDROCHLORIDE
  8. DIBASE [Concomitant]
     Active Substance: CHOLECALCIFEROL
  9. PANTOPAN [Concomitant]
     Active Substance: PANTOPRAZOLE SODIUM
  10. HALCION [Concomitant]
     Active Substance: TRIAZOLAM

REACTIONS (4)
  - Neutropenia [Unknown]
  - Anaemia [Unknown]
  - Somnolence [Unknown]
  - Asthenia [Unknown]

NARRATIVE: CASE EVENT DATE: 20180523
